FAERS Safety Report 11879898 (Version 2)
Quarter: 2016Q1

REPORT INFORMATION
  Report Type: Spontaneous
  Country: JP (occurrence: JP)
  Receive Date: 20151230
  Receipt Date: 20160216
  Transmission Date: 20160526
  Serious: Yes (Hospitalization, Disabling)
  Sender: FDA-Public Use
  Company Number: JP-BAYER-2015-496187

PATIENT
  Age: 44 Year
  Sex: Female
  Weight: 52 kg

DRUGS (8)
  1. STIVARGA [Suspect]
     Active Substance: REGORAFENIB
     Indication: RECTAL CANCER RECURRENT
     Dosage: 160 MG, QD ON FOR 3 WEEKS AND OFF FOR 1 WEEK
     Route: 048
     Dates: start: 20150922, end: 20150924
  2. MAGMITT [Concomitant]
     Active Substance: MAGNESIUM OXIDE
     Dosage: DAILY DOSE 990 MG
     Route: 048
  3. STIVARGA [Suspect]
     Active Substance: REGORAFENIB
     Indication: RECTAL CANCER RECURRENT
     Dosage: 160 MG, QD ON FOR 3 WEEKS AND OFF FOR 1 WEEK
     Route: 048
     Dates: start: 20150917, end: 20150919
  4. STIVARGA [Suspect]
     Active Substance: REGORAFENIB
     Indication: RECTAL CANCER RECURRENT
     Dosage: 120 MG, QD ON FOR 3 WEEKS AND OFF FOR 1 WEEK
     Route: 048
     Dates: start: 20150925, end: 20150926
  5. OXYCODONE [Concomitant]
     Active Substance: OXYCODONE
     Dosage: DAILY DOSE 200 MG
     Route: 048
  6. NAIXAN [Concomitant]
     Active Substance: NAPROXEN SODIUM
     Dosage: DAILY DOSE 300 MG
     Route: 048
  7. STIVARGA [Suspect]
     Active Substance: REGORAFENIB
     Indication: RECTAL CANCER RECURRENT
     Dosage: 120 MG, QD ON FOR 3 WEEKS AND OFF FOR 1 WEEK
     Route: 048
     Dates: start: 20150920, end: 20150921
  8. LANSOPRAZOLE. [Concomitant]
     Active Substance: LANSOPRAZOLE
     Dosage: DAILY DOSE 30 MG
     Route: 048

REACTIONS (3)
  - Hair colour changes [Not Recovered/Not Resolved]
  - Rash [Recovered/Resolved]
  - Female genital tract fistula [Not Recovered/Not Resolved]

NARRATIVE: CASE EVENT DATE: 201509
